FAERS Safety Report 23445148 (Version 1)
Quarter: 2024Q1

REPORT INFORMATION
  Report Type: Spontaneous
  Country: DE (occurrence: DE)
  Receive Date: 20240125
  Receipt Date: 20240125
  Transmission Date: 20240410
  Serious: Yes (Other)
  Sender: FDA-Public Use
  Company Number: DE-EPICPHARMA-DE-2024EPCLIT00174

PATIENT
  Age: 71 Year
  Sex: Male

DRUGS (2)
  1. TRIAMCINOLONE ACETONIDE [Suspect]
     Active Substance: TRIAMCINOLONE ACETONIDE
     Indication: Gastrointestinal endoscopic therapy
     Route: 065
     Dates: start: 201812
  2. BUDESONIDE [Suspect]
     Active Substance: BUDESONIDE
     Indication: Gastrointestinal endoscopic therapy
     Route: 048

REACTIONS (2)
  - Neoplasm recurrence [Unknown]
  - Product use in unapproved indication [Unknown]
